FAERS Safety Report 17940739 (Version 3)
Quarter: 2020Q3

REPORT INFORMATION
  Report Type: Spontaneous
  Country: CZ (occurrence: CZ)
  Receive Date: 20200625
  Receipt Date: 20200728
  Transmission Date: 20201103
  Serious: Yes (Other)
  Sender: FDA-Public Use
  Company Number: CZ-SA-2020SA158220

PATIENT

DRUGS (6)
  1. EXACYL [Concomitant]
     Active Substance: TRANEXAMIC ACID
     Indication: HAEMORRHAGE
     Dosage: 500 MG, PRN
  2. XARELTO [Concomitant]
     Active Substance: RIVAROXABAN
     Dosage: 20 MG, QD
  3. POTASSIUM CHLORIDE. [Concomitant]
     Active Substance: POTASSIUM CHLORIDE
     Dosage: 1 DF, QD
  4. TOLURA [Concomitant]
     Active Substance: TELMISARTAN
     Dosage: 40 MG, QD
  5. AUBAGIO [Suspect]
     Active Substance: TERIFLUNOMIDE
     Indication: MULTIPLE SCLEROSIS
     Dosage: 14 MG, QD
     Route: 048
  6. OMEPRAZOLE. [Concomitant]
     Active Substance: OMEPRAZOLE
     Dosage: 1 DF, BID

REACTIONS (8)
  - Nausea [Recovered/Resolved]
  - Tinnitus [Recovered/Resolved]
  - Gastric disorder [Unknown]
  - Faeces discoloured [Unknown]
  - Taste disorder [Recovered/Resolved]
  - Melaena [Unknown]
  - Haematemesis [Unknown]
  - Adenocarcinoma gastric [Not Recovered/Not Resolved]

NARRATIVE: CASE EVENT DATE: 20200512
